FAERS Safety Report 24983173 (Version 1)
Quarter: 2025Q1

REPORT INFORMATION
  Report Type: Spontaneous
  Country: US (occurrence: US)
  Receive Date: 20250218
  Receipt Date: 20250218
  Transmission Date: 20250408
  Serious: Yes (Other)
  Sender: STRIDES
  Company Number: US-STRIDES ARCOLAB LIMITED-2024SP000538

PATIENT
  Age: 21 Year
  Sex: Male

DRUGS (5)
  1. ETOPOSIDE [Suspect]
     Active Substance: ETOPOSIDE
     Indication: Glioblastoma
     Route: 065
  2. SELUMETINIB [Suspect]
     Active Substance: SELUMETINIB
     Indication: Glioblastoma
     Route: 065
  3. LOMUSTINE [Suspect]
     Active Substance: LOMUSTINE
     Indication: Glioblastoma
     Route: 065
  4. BEVACIZUMAB [Suspect]
     Active Substance: BEVACIZUMAB
     Indication: Glioblastoma
     Route: 065
  5. TEMOZOLOMIDE [Suspect]
     Active Substance: TEMOZOLOMIDE
     Indication: Glioblastoma
     Route: 065

REACTIONS (1)
  - Drug ineffective for unapproved indication [Unknown]
